FAERS Safety Report 7826344-9 (Version None)
Quarter: 2011Q4

REPORT INFORMATION
  Report Type: 
  Country: None (occurrence: None)
  Receive Date: 20111020
  Receipt Date: 20111010
  Transmission Date: 20120403
  Serious: No
  Sender: FDA-Public Use
  Company Number: US-BIOGENIDEC-2011BI039178

PATIENT
  Age: 48 Year
  Sex: Female

DRUGS (3)
  1. TYSABRI [Suspect]
     Indication: MULTIPLE SCLEROSIS
     Route: 042
     Dates: start: 20110222
  2. IV B-12 REPLACEMENT [Concomitant]
     Indication: VITAMIN B12 DECREASED
     Route: 042
     Dates: start: 20100101
  3. ORAL B--12 [Concomitant]
     Indication: VITAMIN B12 DECREASED
     Route: 048

REACTIONS (1)
  - ASTHMA [None]
